FAERS Safety Report 5671851-0 (Version None)
Quarter: 2008Q1

REPORT INFORMATION
  Report Type: 
  Country: None (occurrence: None)
  Receive Date: 20080317
  Receipt Date: 20080317
  Transmission Date: 20080703
  Serious: No
  Sender: FDA-Public Use
  Company Number: None

PATIENT
  Age: 54 Year
  Sex: Female
  Weight: 45.3597 kg

DRUGS (2)
  1. ZOLPIDEM TARTRATE [Suspect]
     Indication: SLEEP DISORDER
     Dosage: 10 MG  QHS  PO
     Route: 048
     Dates: start: 20071126, end: 20080105
  2. ZOLPIDEM TARTRATE [Suspect]
     Indication: DEPRESSION
     Dosage: 10 MG QHS PO
     Route: 048
     Dates: start: 20080106, end: 20080314

REACTIONS (5)
  - DIZZINESS [None]
  - MIDDLE INSOMNIA [None]
  - PHARMACEUTICAL PRODUCT COMPLAINT [None]
  - SLEEP DISORDER [None]
  - THERAPEUTIC RESPONSE UNEXPECTED WITH DRUG SUBSTITUTION [None]
